FAERS Safety Report 8272651-8 (Version None)
Quarter: 2012Q2

REPORT INFORMATION
  Report Type: 
  Country: None (occurrence: None)
  Receive Date: 20120410
  Receipt Date: 20120329
  Transmission Date: 20120825
  Serious: Yes (Other)
  Sender: FDA-Public Use
  Company Number: US-ELI_LILLY_AND_COMPANY-US201203004827

PATIENT
  Sex: Male

DRUGS (6)
  1. HUMALOG [Suspect]
     Indication: TYPE 2 DIABETES MELLITUS
     Dosage: 10 U, TID
     Dates: start: 20111201
  2. HUMALOG [Suspect]
     Dosage: 10 U, TID
     Dates: start: 20111201
  3. HUMULIN 70/30 [Suspect]
     Indication: TYPE 2 DIABETES MELLITUS
     Dosage: 16 U, EACH EVENING
     Dates: start: 20111201
  4. HUMULIN 70/30 [Suspect]
     Dosage: 14 U, EACH EVENING
     Dates: start: 20060101, end: 20111201
  5. HUMULIN 70/30 [Suspect]
     Dosage: 16 U, EACH EVENING
     Dates: start: 20111201
  6. HUMALOG [Suspect]
     Dosage: 8 U, BID
     Dates: start: 20060101, end: 20111201

REACTIONS (4)
  - EYE HAEMORRHAGE [None]
  - BLOOD GLUCOSE INCREASED [None]
  - DRUG DOSE OMISSION [None]
  - VISUAL IMPAIRMENT [None]
